FAERS Safety Report 5766783-3 (Version None)
Quarter: 2008Q2

REPORT INFORMATION
  Report Type: 
  Country: None (occurrence: None)
  Receive Date: 20080612
  Receipt Date: 20080602
  Transmission Date: 20081010
  Serious: Yes (Hospitalization)
  Sender: FDA-Public Use
  Company Number: US-ROCHE-568076

PATIENT
  Age: 84 Year
  Sex: Female

DRUGS (3)
  1. BONIVA [Suspect]
     Indication: OSTEOPOROSIS
     Route: 048
     Dates: start: 20070501, end: 20080301
  2. BONIVA [Suspect]
     Route: 048
     Dates: start: 20080601
  3. ANTIHYPERTENSIVE NOS [Concomitant]

REACTIONS (1)
  - INTESTINAL CYST [None]
